FAERS Safety Report 9331264 (Version 1)
Quarter: 2013Q2

REPORT INFORMATION
  Report Type: Spontaneous
  Country: IT (occurrence: IT)
  Receive Date: 20130605
  Receipt Date: 20130605
  Transmission Date: 20140414
  Serious: Yes (Hospitalization)
  Sender: FDA-Public Use
  Company Number: IT-PFIZER INC-2013169812

PATIENT
  Age: 38 Year
  Sex: Male

DRUGS (2)
  1. PANTORC [Suspect]
     Dosage: 400 MG, SINGLE
     Route: 048
     Dates: start: 20130507, end: 20130507
  2. RIVOTRIL [Suspect]
     Dosage: 16 MG, SINGLE
     Route: 048
     Dates: start: 20130507, end: 20130507

REACTIONS (3)
  - Overdose [Unknown]
  - Drug abuse [Unknown]
  - Sopor [Recovered/Resolved]
